FAERS Safety Report 16862995 (Version 1)
Quarter: 2019Q3

REPORT INFORMATION
  Report Type: Spontaneous
  Country: US (occurrence: US)
  Receive Date: 20190927
  Receipt Date: 20190927
  Transmission Date: 20191005
  Serious: Yes (Other)
  Sender: FDA-Public Use
  Company Number: US-GLAXOSMITHKLINE-US2019AMR175211

PATIENT
  Age: 60 Year
  Sex: Female

DRUGS (1)
  1. TRELEGY ELLIPTA [Suspect]
     Active Substance: FLUTICASONE FUROATE\UMECLIDINIUM BROMIDE\VILANTEROL TRIFENATATE
     Indication: PRODUCT USED FOR UNKNOWN INDICATION
     Dosage: 100, 62.5 AND 25 MCG
     Route: 065
     Dates: start: 2018

REACTIONS (4)
  - Dyspnoea [Unknown]
  - Product dose omission [Unknown]
  - Chest discomfort [Unknown]
  - Pneumonia [Unknown]

NARRATIVE: CASE EVENT DATE: 20190919
